FAERS Safety Report 8234186-8 (Version None)
Quarter: 2012Q1

REPORT INFORMATION
  Report Type: 
  Country: None (occurrence: None)
  Receive Date: 20120326
  Receipt Date: 20120322
  Transmission Date: 20120608
  Serious: Yes (Death)
  Sender: FDA-Public Use
  Company Number: DK-B.I. PHARMACEUTICALS,INC./RIDGEFIELD-2012-SW-00248DB

PATIENT
  Sex: Female

DRUGS (3)
  1. PRADAXA [Suspect]
     Dates: start: 20120309
  2. DIFLUCAN [Concomitant]
     Indication: ORAL CANDIDIASIS
  3. PRADAXA [Suspect]
     Indication: ATRIAL FIBRILLATION
     Dosage: 220 MG
     Route: 048
     Dates: start: 20120201

REACTIONS (4)
  - HYPOVOLAEMIC SHOCK [None]
  - ABDOMINAL PAIN [None]
  - GASTROINTESTINAL HAEMORRHAGE [None]
  - CARDIAC ARREST [None]
